FAERS Safety Report 6937282-8 (Version None)
Quarter: 2010Q3

REPORT INFORMATION
  Report Type: 
  Country: None (occurrence: None)
  Receive Date: 20100823
  Receipt Date: 20100813
  Transmission Date: 20110219
  Serious: Yes (Hospitalization)
  Sender: FDA-Public Use
  Company Number: B0650944A

PATIENT
  Sex: Female
  Weight: 130 kg

DRUGS (1)
  1. ARIXTRA [Suspect]
     Indication: THROMBOSIS PROPHYLAXIS
     Dosage: 2.5MG PER DAY
     Route: 058
     Dates: start: 20100326, end: 20100416

REACTIONS (3)
  - HAEMATOMA [None]
  - POST PROCEDURAL HAEMATOMA [None]
  - SKIN DISORDER [None]
